FAERS Safety Report 5383316-4 (Version None)
Quarter: 2007Q3

REPORT INFORMATION
  Report Type: 
  Country: None (occurrence: None)
  Receive Date: 20070710
  Receipt Date: 20070627
  Transmission Date: 20080115
  Serious: Yes (Death)
  Sender: FDA-Public Use
  Company Number: GB-ELI_LILLY_AND_COMPANY-GB200706005142

PATIENT
  Age: 78 Year
  Sex: Female

DRUGS (7)
  1. CYMBALTA [Suspect]
     Indication: DEPRESSION
     Dosage: 30 MG, UNK
     Dates: start: 20070403, end: 20070516
  2. ANTIPSYCHOTICS [Concomitant]
  3. OLANZAPINE [Suspect]
     Dosage: 7.5 MG, UNK
     Dates: start: 20070516
  4. VALSARTAN [Concomitant]
     Dosage: 150 MG, UNK
  5. SALBUTAMOL [Concomitant]
     Indication: ASTHMA
  6. IPRATROPIUM BROMIDE [Concomitant]
     Indication: CHRONIC OBSTRUCTIVE PULMONARY DISEASE
  7. BECOTIDE [Concomitant]
     Indication: ASTHMA

REACTIONS (3)
  - CARDIAC ARREST [None]
  - HYPOMANIA [None]
  - MEAN CELL VOLUME ABNORMAL [None]
